FAERS Safety Report 16288535 (Version 1)
Quarter: 2019Q2

REPORT INFORMATION
  Report Type: Spontaneous
  Country: JP (occurrence: JP)
  Receive Date: 20190509
  Receipt Date: 20190509
  Transmission Date: 20190711
  Serious: Yes (Other)
  Sender: FDA-Public Use
  Company Number: JP-ROCHE-2308919

PATIENT

DRUGS (2)
  1. RITUXIMAB BIOSIMILAR 1 [Concomitant]
     Indication: NON-HODGKIN^S LYMPHOMA
     Route: 041
  2. RITUXAN [Suspect]
     Active Substance: RITUXIMAB
     Indication: NON-HODGKIN^S LYMPHOMA
     Route: 041

REACTIONS (1)
  - Small intestinal stenosis [Recovering/Resolving]
